FAERS Safety Report 8927626 (Version 3)
Quarter: 2013Q1

REPORT INFORMATION
  Report Type: Report from Study
  Country: JP (occurrence: JP)
  Receive Date: 20121127
  Receipt Date: 20130116
  Transmission Date: 20140127
  Serious: Yes (Death, Hospitalization, Other)
  Sender: FDA-Public Use
  Company Number: PHHY2012JP086096

PATIENT
  Age: 79 Year
  Sex: Male
  Weight: 57 kg

DRUGS (2)
  1. AFINITOR [Suspect]
     Indication: METASTATIC RENAL CELL CARCINOMA
     Dosage: 5 MG, DAILY
     Route: 048
     Dates: start: 20120718
  2. AFINITOR [Suspect]
     Dosage: 10 MG, DAILY
     Route: 048
     Dates: start: 20120728, end: 20120809

REACTIONS (6)
  - Diarrhoea [Recovered/Resolved]
  - Cerebral infarction [Fatal]
  - General physical health deterioration [Not Recovered/Not Resolved]
  - C-reactive protein increased [Unknown]
  - Haemoglobin decreased [Unknown]
  - Blood albumin decreased [Unknown]
